FAERS Safety Report 6238749-0 (Version None)
Quarter: 2009Q2

REPORT INFORMATION
  Report Type: 
  Country: None (occurrence: None)
  Receive Date: 20090622
  Receipt Date: 20090609
  Transmission Date: 20091009
  Serious: Yes (Hospitalization)
  Sender: FDA-Public Use
  Company Number: US-ELI_LILLY_AND_COMPANY-US200906002217

PATIENT
  Sex: Female
  Weight: 109 kg

DRUGS (8)
  1. CYMBALTA [Suspect]
     Indication: DEPRESSION
     Dates: start: 20070101
  2. REBIF [Concomitant]
     Indication: MULTIPLE SCLEROSIS
     Dosage: 44 UG, 3/W
     Route: 058
     Dates: start: 20071010
  3. ASPIRIN [Concomitant]
     Indication: HEADACHE
     Dosage: 500 MG, AS NEEDED
     Dates: start: 20081101
  4. ASPIRIN [Concomitant]
     Dosage: 1000 MG, OTHER
     Dates: start: 20081101
  5. IMITREX [Concomitant]
     Indication: MIGRAINE
  6. LANTUS [Concomitant]
     Indication: DIABETES MELLITUS
     Dosage: 50 IU, DAILY (1/D)
  7. HUMALOG [Concomitant]
     Indication: DIABETES MELLITUS
  8. QUININE [Concomitant]
     Indication: MUSCLE SPASMS

REACTIONS (3)
  - ANAEMIA [None]
  - EAR DISCOMFORT [None]
  - NASAL DISCOMFORT [None]
